FAERS Safety Report 7789645-9 (Version None)
Quarter: 2011Q3

REPORT INFORMATION
  Report Type: 
  Country: None (occurrence: None)
  Receive Date: 20110930
  Receipt Date: 20110926
  Transmission Date: 20111222
  Serious: Yes (Hospitalization, Other)
  Sender: FDA-Public Use
  Company Number: US-MERCK-1108USA01573

PATIENT
  Age: 74 Year
  Sex: Female
  Weight: 63 kg

DRUGS (1)
  1. FOSAMAX [Suspect]
     Indication: OSTEOPOROSIS
     Route: 048
     Dates: start: 19980101, end: 20080101

REACTIONS (14)
  - PERIPHERAL ARTERIAL OCCLUSIVE DISEASE [None]
  - VITAMIN B12 DEFICIENCY [None]
  - HYPERTENSION [None]
  - TOOTH DISORDER [None]
  - ANGLE CLOSURE GLAUCOMA [None]
  - FEMUR FRACTURE [None]
  - GAIT DISTURBANCE [None]
  - BLOOD CHOLESTEROL INCREASED [None]
  - INTERMITTENT CLAUDICATION [None]
  - PELVIC FRACTURE [None]
  - ILIAC ARTERY STENOSIS [None]
  - MITRAL VALVE INCOMPETENCE [None]
  - GINGIVAL DISORDER [None]
  - ASPARTATE AMINOTRANSFERASE INCREASED [None]
